FAERS Safety Report 8971682 (Version 1)
Quarter: 2012Q4

REPORT INFORMATION
  Report Type: Report from Study
  Country: US (occurrence: US)
  Receive Date: 20121217
  Receipt Date: 20121217
  Transmission Date: 20130627
  Serious: No
  Sender: FDA-Public Use
  Company Number: US-JNJFOC-20121206948

PATIENT
  Sex: Female

DRUGS (2)
  1. REMICADE [Suspect]
     Indication: CROHN^S DISEASE
     Route: 042
     Dates: start: 20121003
  2. REMICADE [Suspect]
     Indication: CROHN^S DISEASE
     Route: 042

REACTIONS (1)
  - Herpes zoster [Recovered/Resolved]
